FAERS Safety Report 10151627 (Version 3)
Quarter: 2014Q2

REPORT INFORMATION
  Report Type: Spontaneous
  Country: US (occurrence: US)
  Receive Date: 20140505
  Receipt Date: 20140630
  Transmission Date: 20141212
  Serious: Yes (Hospitalization, Other)
  Sender: FDA-Public Use
  Company Number: 2014SP002234

PATIENT
  Age: 54 Year
  Sex: Female
  Weight: 128.3 kg

DRUGS (22)
  1. CYTARABINE [Suspect]
     Indication: ACUTE MYELOID LEUKAEMIA
     Route: 042
     Dates: start: 20140403, end: 20140410
  2. DAUNORUBICIN [Suspect]
     Indication: ACUTE MYELOID LEUKAEMIA
     Route: 040
     Dates: start: 20140403, end: 20140405
  3. DAUNORUBICIN [Suspect]
     Indication: ACUTE MYELOID LEUKAEMIA
     Route: 058
  4. DECITABINE [Suspect]
     Indication: PRODUCT USED FOR UNKNOWN INDICATION
     Route: 042
  5. ERGOCALCIFEROL [Concomitant]
     Indication: VITAMIN D DEFICIENCY
     Dates: start: 201402
  6. ACYCLOVIR /00587301/ [Concomitant]
     Indication: PROPHYLAXIS
     Dates: start: 20140317
  7. LEVOFLOXACIN [Concomitant]
     Indication: ANTIBIOTIC PROPHYLAXIS
     Dates: start: 20140317
  8. ONDANSETRON [Concomitant]
     Indication: PROPHYLAXIS OF NAUSEA AND VOMITING
     Dates: start: 20140410
  9. PANTOPRAZOLE [Concomitant]
     Indication: CHEST PAIN
     Dates: start: 20140406
  10. PANTOPRAZOLE [Concomitant]
     Indication: NAUSEA
     Dates: start: 20140406
  11. PANTOPRAZOLE [Concomitant]
     Indication: GASTROOESOPHAGEAL REFLUX DISEASE
     Dates: start: 20140406
  12. ALTEPLASE [Concomitant]
     Indication: PROPHYLAXIS
     Dates: start: 20140411
  13. ACETAMINOPHEN [Concomitant]
     Indication: NECK PAIN
     Dates: start: 20140408, end: 20140409
  14. ACETAMINOPHEN [Concomitant]
     Indication: HEADACHE
     Dates: start: 20140408, end: 20140409
  15. ALLOPURINOL [Concomitant]
     Indication: HYPERURICAEMIA
     Dates: start: 20140403, end: 20140406
  16. MICAFUNGIN [Concomitant]
     Indication: ANTIFUNGAL PROPHYLAXIS
     Dates: start: 20140403, end: 20140404
  17. MICAFUNGIN [Concomitant]
     Indication: ANTIFUNGAL PROPHYLAXIS
     Dates: start: 20140424, end: 20140428
  18. POTASSIUM CHLORIDE [Concomitant]
     Indication: HYPOKALAEMIA
     Dates: start: 20140405, end: 20140406
  19. LORAZEPAM [Concomitant]
     Indication: NAUSEA
     Dates: start: 20140407, end: 20140408
  20. VANCOMYCIN [Concomitant]
     Dates: start: 20140417, end: 20140426
  21. MEROPENEM [Concomitant]
     Dates: start: 20140417, end: 20140427
  22. METRONIDAZOLE [Concomitant]
     Dates: start: 20140423, end: 20140502

REACTIONS (14)
  - Neutropenic colitis [Unknown]
  - Febrile neutropenia [Recovered/Resolved]
  - Abdominal pain [Recovered/Resolved]
  - Abdominal distension [Recovered/Resolved]
  - Nausea [Unknown]
  - Vomiting [Unknown]
  - Diarrhoea [Recovered/Resolved]
  - Hypotension [Unknown]
  - Chills [Not Recovered/Not Resolved]
  - Atrial fibrillation [Recovered/Resolved]
  - Atrial flutter [Recovered/Resolved]
  - Palpitations [Recovered/Resolved]
  - Panniculitis lobular [Recovering/Resolving]
  - Rash [Recovering/Resolving]
